FAERS Safety Report 9629502 (Version 2)
Quarter: 2013Q4

REPORT INFORMATION
  Report Type: Spontaneous
  Country: BR (occurrence: BR)
  Receive Date: 20131017
  Receipt Date: 20131017
  Transmission Date: 20140711
  Serious: Yes (Other)
  Sender: FDA-Public Use
  Company Number: BR-SA-THYM-1003937

PATIENT
  Age: 50 Year
  Sex: Female
  Weight: 58.25 kg

DRUGS (1)
  1. THYMOGLOBULIN [Suspect]
     Indication: RENAL TRANSPLANT
     Dosage: 25 MG, UNK
     Route: 042
     Dates: start: 20130722, end: 20130722

REACTIONS (4)
  - Tremor [Recovered/Resolved]
  - Tachycardia [Recovered/Resolved]
  - Limb discomfort [Recovered/Resolved]
  - Dyspnoea [Recovered/Resolved]
